FAERS Safety Report 13448590 (Version 1)
Quarter: 2017Q2

REPORT INFORMATION
  Report Type: Spontaneous
  Country: US (occurrence: US)
  Receive Date: 20170417
  Receipt Date: 20170417
  Transmission Date: 20170830
  Serious: No
  Sender: FDA-Public Use
  Company Number: US-MEDA-2017030111

PATIENT
  Age: 71 Year
  Sex: Female
  Weight: 68 kg

DRUGS (4)
  1. FIORICET [Concomitant]
     Active Substance: ACETAMINOPHEN\BUTALBITAL\CAFFEINE
     Indication: HEADACHE
     Dates: start: 198901
  2. BUTABARBITAL [Concomitant]
     Active Substance: BUTABARBITAL
     Indication: HEADACHE
  3. BENADRYL [Concomitant]
     Active Substance: DIPHENHYDRAMINE HYDROCHLORIDE
     Indication: RHINITIS ALLERGIC
  4. BUTISOL SODIUM [Suspect]
     Active Substance: BUTABARBITAL SODIUM
     Indication: HEADACHE
     Dosage: 15 MG IN THE MORNING + AFTERNOON; 30 MG NIGHTLY
     Route: 048
     Dates: start: 2015

REACTIONS (8)
  - Dizziness [Unknown]
  - Hypersomnia [Unknown]
  - Balance disorder [Unknown]
  - Gait disturbance [Unknown]
  - Communication disorder [Recovering/Resolving]
  - Confusional state [Unknown]
  - Off label use [Unknown]
  - Product quality issue [Unknown]

NARRATIVE: CASE EVENT DATE: 2015
